FAERS Safety Report 6416028-6 (Version None)
Quarter: 2009Q4

REPORT INFORMATION
  Report Type: 
  Country: None (occurrence: None)
  Receive Date: 20091023
  Receipt Date: 20091009
  Transmission Date: 20100525
  Serious: Yes (Hospitalization)
  Sender: FDA-Public Use
  Company Number: 09-PDX10-01015

PATIENT
  Age: 52 Year
  Sex: Male
  Weight: 88.9 kg

DRUGS (13)
  1. PRALATREXATE (20 MG/ML, INJECTION FOR INFUSION) [Suspect]
     Indication: T-CELL LYMPHOMA
     Dosage: 30 MG/M2 (30 MG/M2, 1 IN 2 WK), IV; 20 MG/M2 (20 MG/M2)
     Route: 042
     Dates: start: 20081024, end: 20090918
  2. PRALATREXATE (20 MG/ML, INJECTION FOR INFUSION) [Suspect]
     Indication: T-CELL LYMPHOMA
     Dosage: 30 MG/M2 (30 MG/M2, 1 IN 2 WK), IV; 20 MG/M2 (20 MG/M2)
     Route: 042
     Dates: start: 20080417
  3. ESOMEPRAZOLE MAGNESIUM [Concomitant]
  4. FEXOFENADINE [Concomitant]
  5. METOPROLOL [Concomitant]
  6. MAGIC MOUTHWASH [Concomitant]
  7. PILOCARPINE HYDROCHLORIDE [Concomitant]
  8. PREGABALIN [Concomitant]
  9. VANLAFAXINE [Concomitant]
  10. MORPHINE [Concomitant]
  11. CATHFLOW [Concomitant]
  12. ACYCLOVIR [Concomitant]
  13. ASPIRIN [Concomitant]

REACTIONS (11)
  - ASTHENIA [None]
  - DEHYDRATION [None]
  - DYSURIA [None]
  - HAEMATOCRIT DECREASED [None]
  - HAEMOGLOBIN DECREASED [None]
  - MALAISE [None]
  - MUCOSAL INFLAMMATION [None]
  - PLATELET COUNT DECREASED [None]
  - RED BLOOD CELL COUNT DECREASED [None]
  - STAPHYLOCOCCAL INFECTION [None]
  - WHITE BLOOD CELL COUNT DECREASED [None]
